FAERS Safety Report 14326971 (Version 2)
Quarter: 2018Q1

REPORT INFORMATION
  Report Type: Spontaneous
  Country: IT (occurrence: IT)
  Receive Date: 20171227
  Receipt Date: 20180214
  Transmission Date: 20180509
  Serious: Yes (Other)
  Sender: FDA-Public Use
  Company Number: IT-WEST-WARD PHARMACEUTICALS CORP.-IT-H14001-17-05187

PATIENT
  Age: 25 Year
  Sex: Male
  Weight: 82 kg

DRUGS (3)
  1. ENDOXAN BAXTER [Suspect]
     Active Substance: CYCLOPHOSPHAMIDE
     Indication: NEUROBLASTOMA
     Route: 042
     Dates: start: 20170714, end: 20170905
  2. VINCRISTINA PFIZER [Concomitant]
     Active Substance: VINCRISTINE
     Indication: NEUROBLASTOMA
     Route: 040
     Dates: start: 20170714, end: 20170905
  3. DOXORUBICIN HYDROCHLORIDE. [Suspect]
     Active Substance: DOXORUBICIN HYDROCHLORIDE
     Indication: NEUROBLASTOMA
     Route: 042
     Dates: start: 20170717, end: 20170904

REACTIONS (2)
  - Thrombocytopenia [Recovered/Resolved]
  - Febrile neutropenia [Recovered/Resolved]

NARRATIVE: CASE EVENT DATE: 20170726
